FAERS Safety Report 10176207 (Version 1)
Quarter: 2014Q2

REPORT INFORMATION
  Report Type: Spontaneous
  Country: US (occurrence: None)
  Receive Date: 20140515
  Receipt Date: 20140515
  Transmission Date: 20141212
  Serious: Yes (Other)
  Sender: FDA-Public Use
  Company Number: None

PATIENT
  Age: 70 Year
  Sex: Female

DRUGS (9)
  1. AFINITOR [Suspect]
     Indication: PRODUCT USED FOR UNKNOWN INDICATION
     Route: 048
     Dates: start: 20140221
  2. CARVEDILOL [Concomitant]
  3. ZOLOFT [Concomitant]
  4. METHIMAXOLE [Concomitant]
  5. SPIRONOLACTONE [Concomitant]
  6. ALLEGRA [Concomitant]
  7. VITAMIN C [Concomitant]
  8. CALCIUM + D [Concomitant]
  9. MAGNESIUM [Concomitant]

REACTIONS (3)
  - Epistaxis [None]
  - Nasal dryness [None]
  - Blood count abnormal [None]
